FAERS Safety Report 4575954-3 (Version None)
Quarter: 2005Q1

REPORT INFORMATION
  Report Type: 
  Country: None (occurrence: None)
  Receive Date: 20050209
  Receipt Date: 20050202
  Transmission Date: 20050727
  Serious: Yes (Death)
  Sender: FDA-Public Use
  Company Number: GB-MERCK-0502GBR00041

PATIENT
  Age: 43 Year
  Sex: Female

DRUGS (3)
  1. CANCIDAS [Suspect]
     Indication: ASPERGILLOSIS
     Route: 042
  2. CANCIDAS [Suspect]
     Route: 042
  3. AMPHOTERICIN B AND CHOLESTEROL AND DISTEAROYLPHOSPHATIDYLGLYCEROL AND [Concomitant]
     Indication: ASPERGILLOSIS
     Route: 065

REACTIONS (1)
  - ACUTE RESPIRATORY DISTRESS SYNDROME [None]
